FAERS Safety Report 15989531 (Version 3)
Quarter: 2019Q2

REPORT INFORMATION
  Report Type: Spontaneous
  Country: US (occurrence: US)
  Receive Date: 20190221
  Receipt Date: 20190402
  Transmission Date: 20190711
  Serious: No
  Sender: FDA-Public Use
  Company Number: US-PFIZER INC-2019068776

PATIENT
  Age: 79 Year
  Sex: Male
  Weight: 95.25 kg

DRUGS (1)
  1. DOXAZOSIN MESILATE [Suspect]
     Active Substance: DOXAZOSIN MESYLATE
     Indication: PROSTATE EXAMINATION ABNORMAL
     Dosage: 4 MG, ONCE DAILY (ONCE A NIGHT)

REACTIONS (1)
  - Drug ineffective [Unknown]
